FAERS Safety Report 24859232 (Version 2)
Quarter: 2025Q2

REPORT INFORMATION
  Report Type: Report from Study
  Country: US (occurrence: US)
  Receive Date: 20250118
  Receipt Date: 20250522
  Transmission Date: 20250717
  Serious: No
  Sender: ABBVIE
  Company Number: US-ABBVIE-6088003

PATIENT
  Age: 31 Year
  Sex: Female

DRUGS (1)
  1. SKYRIZI [Suspect]
     Active Substance: RISANKIZUMAB-RZAA
     Indication: Psoriasis
     Route: 058
     Dates: start: 20250102

REACTIONS (5)
  - Injection site bruising [Unknown]
  - Upper respiratory tract infection [Unknown]
  - Injection site discharge [Not Recovered/Not Resolved]
  - COVID-19 [Unknown]
  - Device issue [Unknown]

NARRATIVE: CASE EVENT DATE: 20250101
